FAERS Safety Report 4493804-0 (Version None)
Quarter: 2004Q4

REPORT INFORMATION
  Report Type: 
  Country: None (occurrence: None)
  Receive Date: 20041105
  Receipt Date: 20041025
  Transmission Date: 20050328
  Serious: Yes (Hospitalization)
  Sender: FDA-Public Use
  Company Number: ES-ABBOTT-04P-144-0278501-00

PATIENT
  Age: 77 Year
  Sex: Female

DRUGS (6)
  1. MANIDON 120 RETARD [Suspect]
     Indication: HYPERTENSION
     Route: 048
     Dates: start: 19940101
  2. VOLTAREN [Suspect]
     Indication: PAIN
     Route: 048
     Dates: start: 19980101, end: 20030101
  3. ATORVASTATIN CALCIUM [Suspect]
     Indication: HYPERLIPIDAEMIA
     Route: 048
     Dates: start: 20020101
  4. CAPTOPRIL [Suspect]
     Indication: HYPERTENSION
     Route: 048
     Dates: start: 20020101
  5. PAROXETINE [Suspect]
     Indication: DEPRESSION
     Route: 048
     Dates: start: 20020101
  6. XALACOM [Suspect]
     Indication: DRUG USE FOR UNKNOWN INDICATION
     Route: 057
     Dates: start: 19980101

REACTIONS (1)
  - THROMBOCYTOPENIC PURPURA [None]
